FAERS Safety Report 5116465-6 (Version None)
Quarter: 2006Q3

REPORT INFORMATION
  Report Type: 
  Country: None (occurrence: None)
  Receive Date: 20060928
  Receipt Date: 20060314
  Transmission Date: 20061208
  Serious: Yes (Hospitalization)
  Sender: FDA-Public Use
  Company Number: HQWYE393617MAR06

PATIENT
  Sex: Male

DRUGS (13)
  1. ENBREL [Suspect]
     Indication: RHEUMATOID ARTHRITIS
     Route: 058
     Dates: start: 20050818, end: 20060626
  2. UNKNOWN [Suspect]
     Indication: DRUG USE FOR UNKNOWN INDICATION
     Dosage: UNKNOWN
  3. PREDONINE [Suspect]
     Indication: DRUG USE FOR UNKNOWN INDICATION
     Route: 048
     Dates: start: 19960101, end: 20060626
  4. PROMAC [Concomitant]
     Route: 048
     Dates: start: 20040101, end: 20060626
  5. ONE-ALPHA [Concomitant]
     Route: 048
     Dates: start: 20040101, end: 20060626
  6. DOGMATYL [Concomitant]
     Route: 048
     Dates: start: 20040101, end: 20060626
  7. CLINORIL [Concomitant]
     Route: 048
     Dates: start: 20040101, end: 20060626
  8. DORAL [Concomitant]
     Route: 048
     Dates: start: 20040101, end: 20060626
  9. BERIZYM [Concomitant]
     Route: 048
     Dates: start: 20040101, end: 20060626
  10. PARIET [Concomitant]
     Route: 048
     Dates: start: 20051101, end: 20060626
  11. METOLATE [Concomitant]
     Dosage: UNKNOWN
     Route: 048
     Dates: start: 20051125, end: 20060626
  12. METHOTREXATE [Concomitant]
     Dosage: UNKNOWN
     Route: 048
  13. CYTOTEC [Concomitant]
     Route: 048
     Dates: start: 20040101, end: 20060626

REACTIONS (2)
  - SPINAL COMPRESSION FRACTURE [None]
  - SPONDYLITIS [None]
